FAERS Safety Report 7577095-X (Version None)
Quarter: 2011Q2

REPORT INFORMATION
  Report Type: 
  Country: None (occurrence: None)
  Receive Date: 20110628
  Receipt Date: 20110624
  Transmission Date: 20111010
  Serious: Yes (Life-Threatening, Other)
  Sender: FDA-Public Use
  Company Number: US-PFIZER INC-2011096492

PATIENT
  Age: 21 Year
  Sex: Female

DRUGS (2)
  1. CHANTIX [Suspect]
     Indication: SMOKING CESSATION THERAPY
     Dosage: UNK
     Route: 048
     Dates: start: 20110101, end: 20110101
  2. ATIVAN [Suspect]
     Dosage: UNK
     Route: 048
     Dates: start: 20110101

REACTIONS (2)
  - SUICIDE ATTEMPT [None]
  - AGGRESSION [None]
